FAERS Safety Report 4530339-0 (Version None)
Quarter: 2004Q4

REPORT INFORMATION
  Report Type: 
  Country: None (occurrence: None)
  Receive Date: 20041217
  Receipt Date: 20041206
  Transmission Date: 20050328
  Serious: Yes (Other)
  Sender: FDA-Public Use
  Company Number: US-NOVOPROD-240932

PATIENT
  Age: 80 Year
  Sex: Female

DRUGS (3)
  1. NOVOLOG MIX 70/30 [Suspect]
     Indication: DIABETES MELLITUS
     Dosage: UNKNOWN
     Route: 058
     Dates: end: 20041204
  2. NOVOLOG MIX 70/30 [Suspect]
  3. NOVOLOG MIX 70/30 [Suspect]

REACTIONS (3)
  - BLOOD GLUCOSE INCREASED [None]
  - HEART RATE IRREGULAR [None]
  - PHARMACEUTICAL PRODUCT COMPLAINT [None]
